FAERS Safety Report 4333642-2 (Version None)
Quarter: 2004Q2

REPORT INFORMATION
  Report Type: 
  Country: None (occurrence: None)
  Receive Date: 20040406
  Receipt Date: 20040406
  Transmission Date: 20050107
  Serious: Yes (Other)
  Sender: FDA-Public Use
  Company Number: None

PATIENT
  Age: 65 Year
  Sex: Female
  Weight: 97.5234 kg

DRUGS (1)
  1. METFORMIN HCL [Suspect]
     Dosage: 500 MG BID ORALLY
     Route: 048
     Dates: start: 20000901

REACTIONS (1)
  - DIARRHOEA [None]
